FAERS Safety Report 17021030 (Version 3)
Quarter: 2020Q4

REPORT INFORMATION
  Report Type: Report from Study
  Country: FR (occurrence: FR)
  Receive Date: 20191112
  Receipt Date: 20201123
  Transmission Date: 20210113
  Serious: Yes (Death, Hospitalization, Other)
  Sender: FDA-Public Use
  Company Number: FR-PFIZER INC-2019485925

PATIENT
  Sex: Male
  Weight: 80 kg

DRUGS (17)
  1. MEROPENEM. [Suspect]
     Active Substance: MEROPENEM
     Indication: CANDIDA INFECTION
     Dosage: 3 G, DAILY
     Dates: start: 20180611, end: 20180625
  2. DOBUTAMINE [Concomitant]
     Active Substance: DOBUTAMINE HYDROCHLORIDE
     Indication: HYPOKINESIA
     Dosage: 2 UG/KG/MIN
     Route: 042
     Dates: start: 20180621, end: 20180623
  3. ZAVICEFTA [Suspect]
     Active Substance: AVIBACTAM SODIUM\CEFTAZIDIME
     Indication: URINARY TRACT INFECTION
     Dosage: 6 G, DAILY
     Dates: start: 20180705, end: 20180708
  4. TRIFLUCAN [Suspect]
     Active Substance: FLUCONAZOLE
     Indication: CANDIDA INFECTION
     Dosage: 400 MG, DAILY
     Dates: start: 20180623, end: 20180629
  5. AMPHOTERICIN B. [Suspect]
     Active Substance: AMPHOTERICIN B
     Indication: SYSTEMIC CANDIDA
     Dosage: 1400 MG, DAILY
     Dates: start: 20180706, end: 20180711
  6. THIOTEPA. [Concomitant]
     Active Substance: THIOTEPA
     Indication: BONE MARROW CONDITIONING REGIMEN
     Dosage: 5 MG/KG
  7. FLUDARABINE [Concomitant]
     Active Substance: FLUDARABINE PHOSPHATE
     Indication: BONE MARROW CONDITIONING REGIMEN
     Dosage: 150 MG/M2
  8. NOREPINEPHRINE. [Concomitant]
     Active Substance: NOREPINEPHRINE
     Indication: HYPOTENSION
     Dosage: 2.5 UG/KG/MIN
     Route: 042
     Dates: start: 20180621, end: 20180623
  9. FLUCYTOSINE. [Suspect]
     Active Substance: FLUCYTOSINE
     Indication: SYSTEMIC CANDIDA
     Dosage: 2.5 G, DAILY
     Dates: start: 20180706, end: 20180711
  10. CORDARONE [Suspect]
     Active Substance: AMIODARONE HYDROCHLORIDE
     Indication: ATRIAL FIBRILLATION
     Dosage: 600 MG, DAILY
     Route: 042
     Dates: start: 20180624, end: 20180628
  11. TIENAM [Suspect]
     Active Substance: CILASTATIN SODIUM\IMIPENEM
     Indication: URINARY TRACT INFECTION
     Dosage: 4 G, DAILY
     Route: 048
     Dates: start: 20180704, end: 20180706
  12. ATRACURIUM BESILATE [Suspect]
     Active Substance: ATRACURIUM BESYLATE
     Indication: RESPIRATORY FAILURE
     Dosage: 100 MG, 1X/DAY
     Route: 042
     Dates: start: 20180621, end: 20180621
  13. ETOPOSIDE. [Concomitant]
     Active Substance: ETOPOSIDE
     Indication: BONE MARROW CONDITIONING REGIMEN
     Dosage: 400 MG/M2
  14. CORDARONE [Suspect]
     Active Substance: AMIODARONE HYDROCHLORIDE
     Dosage: 200 MG, DAILY
     Route: 048
     Dates: start: 20180629, end: 20180710
  15. CANCIDAS [Suspect]
     Active Substance: CASPOFUNGIN ACETATE
     Indication: CANDIDA INFECTION
     Dosage: 70 MG, DAILY
     Dates: start: 20180614, end: 20180622
  16. DEFITELIO [Suspect]
     Active Substance: DEFIBROTIDE SODIUM
     Indication: VENOOCCLUSIVE DISEASE
     Dosage: 25 MG/KG, DAILY
     Route: 042
     Dates: start: 20180615, end: 20180704
  17. CASPOFUNGIN ACETATE. [Suspect]
     Active Substance: CASPOFUNGIN ACETATE
     Indication: CANDIDA INFECTION
     Dosage: 50 MG, DAILY
     Dates: start: 20180703, end: 20180705

REACTIONS (11)
  - Encephalopathy [Fatal]
  - Immunodeficiency [Unknown]
  - Clostridium difficile colitis [Fatal]
  - Anaphylactic shock [Unknown]
  - Pneumonia klebsiella [Fatal]
  - Cystitis haemorrhagic [Unknown]
  - Systemic candida [Fatal]
  - Acute pulmonary oedema [Fatal]
  - Splenic candidiasis [Fatal]
  - Atrial fibrillation [Unknown]
  - Multiple organ dysfunction syndrome [Fatal]

NARRATIVE: CASE EVENT DATE: 20180621
